FAERS Safety Report 15722137 (Version 1)
Quarter: 2018Q4

REPORT INFORMATION
  Report Type: Spontaneous
  Country: US (occurrence: US)
  Receive Date: 20181214
  Receipt Date: 20181214
  Transmission Date: 20190205
  Serious: No
  Sender: FDA-Public Use
  Company Number: US-HORIZON-ACT-0371-2018

PATIENT
  Age: 11 Year
  Sex: Male

DRUGS (5)
  1. PREDNISONE. [Concomitant]
     Active Substance: PREDNISONE
  2. SULFAMETHOXAZOLE-TRIMETHOPRIM [Concomitant]
     Active Substance: SULFAMETHOXAZOLE\TRIMETHOPRIM
  3. PREVACID [Concomitant]
     Active Substance: LANSOPRAZOLE
  4. ACTIMMUNE [Suspect]
     Active Substance: INTERFERON GAMMA-1B
     Indication: NEUTROPHIL FUNCTION DISORDER
     Dosage: 40 ?G 3 TIMES WEEKLY
  5. SPORANOX [Concomitant]
     Active Substance: ITRACONAZOLE

REACTIONS (1)
  - Scarlet fever [Not Recovered/Not Resolved]
